FAERS Safety Report 13141067 (Version 1)
Quarter: 2017Q1

REPORT INFORMATION
  Report Type: Report from Study
  Country: CO (occurrence: CO)
  Receive Date: 20170123
  Receipt Date: 20170123
  Transmission Date: 20170428
  Serious: Yes (Life-Threatening, Hospitalization)
  Sender: FDA-Public Use
  Company Number: PHHY2016CO099439

PATIENT
  Age: 67 Year
  Sex: Female
  Weight: 42 kg

DRUGS (4)
  1. EXJADE [Suspect]
     Active Substance: DEFERASIROX
     Indication: IRON OVERLOAD
     Dosage: 20 MG/KG DAILY (500 MG Q12H)
     Route: 048
  2. THYROXINE [Concomitant]
     Active Substance: LEVOTHYROXINE
     Indication: HYPOTHYROIDISM
     Dosage: 50 MG, QD
     Route: 048
  3. EXJADE [Suspect]
     Active Substance: DEFERASIROX
     Dosage: 500 MG, BID
     Route: 048
     Dates: start: 201606
  4. METFORMIN [Concomitant]
     Active Substance: METFORMIN HYDROCHLORIDE
     Indication: DIABETES MELLITUS
     Dosage: 850 MG, BID
     Route: 048

REACTIONS (8)
  - Hepatomegaly [Unknown]
  - Platelet count decreased [Unknown]
  - Dengue fever [Unknown]
  - Incorrect dose administered [Unknown]
  - Diarrhoea [Unknown]
  - Leukopenia [Unknown]
  - Inappropriate schedule of drug administration [Unknown]
  - Serum ferritin increased [Unknown]

NARRATIVE: CASE EVENT DATE: 201509
